FAERS Safety Report 13448239 (Version 2)
Quarter: 2017Q2

REPORT INFORMATION
  Report Type: Report from Study
  Country: CO (occurrence: CO)
  Receive Date: 20170417
  Receipt Date: 20170522
  Transmission Date: 20170830
  Serious: Yes (Other)
  Sender: FDA-Public Use
  Company Number: PHHY2016CO152923

PATIENT
  Age: 57 Year
  Sex: Male
  Weight: 90 kg

DRUGS (10)
  1. HYOSCINE [Concomitant]
     Active Substance: SCOPOLAMINE
     Indication: PRODUCT USED FOR UNKNOWN INDICATION
     Route: 065
  2. TASIGNA [Suspect]
     Active Substance: NILOTINIB
     Indication: CHRONIC MYELOID LEUKAEMIA
     Dosage: 200 MG, QID (FOUR TIMES A DAY)(EVERY 12 HOURS)
     Route: 048
     Dates: start: 20150418
  3. METOPROLOL. [Concomitant]
     Active Substance: METOPROLOL
     Indication: PRODUCT USED FOR UNKNOWN INDICATION
     Route: 065
  4. ALUMINIUM HYDROXIDE [Concomitant]
     Active Substance: ALUMINUM HYDROXIDE
     Indication: PRODUCT USED FOR UNKNOWN INDICATION
     Route: 065
  5. CALCIUM [Concomitant]
     Active Substance: CALCIUM
     Indication: PRODUCT USED FOR UNKNOWN INDICATION
     Route: 065
  6. AMLODIPINE [Concomitant]
     Active Substance: AMLODIPINE BESYLATE
     Indication: PRODUCT USED FOR UNKNOWN INDICATION
     Route: 065
  7. BUTIL BROMURO DE HIOSCINA + DIPIRONA [Concomitant]
     Indication: PRODUCT USED FOR UNKNOWN INDICATION
     Route: 065
  8. OMEPRAZOLE. [Concomitant]
     Active Substance: OMEPRAZOLE
     Indication: PRODUCT USED FOR UNKNOWN INDICATION
     Route: 065
  9. VITAMIN C [Concomitant]
     Active Substance: ASCORBIC ACID
     Indication: PRODUCT USED FOR UNKNOWN INDICATION
     Route: 065
  10. PRELUDYO [Concomitant]
     Indication: PRODUCT USED FOR UNKNOWN INDICATION
     Route: 065

REACTIONS (17)
  - Chronic myeloid leukaemia recurrent [Unknown]
  - Asthenia [Unknown]
  - Depression [Unknown]
  - Inappropriate schedule of drug administration [Unknown]
  - Cardiomegaly [Unknown]
  - Pain [Recovering/Resolving]
  - Discomfort [Unknown]
  - Tachycardia [Unknown]
  - Arthralgia [Unknown]
  - Malignant neoplasm progression [Unknown]
  - Tendonitis [Unknown]
  - Malaise [Recovering/Resolving]
  - Pyrexia [Unknown]
  - Mobility decreased [Recovering/Resolving]
  - Chronic myeloid leukaemia [Unknown]
  - Tendon pain [Unknown]
  - Laceration [Unknown]

NARRATIVE: CASE EVENT DATE: 20161021
